FAERS Safety Report 5913406-6 (Version None)
Quarter: 2008Q4

REPORT INFORMATION
  Report Type: 
  Country: None (occurrence: None)
  Receive Date: 20081009
  Receipt Date: 20081003
  Transmission Date: 20090506
  Serious: Yes (Hospitalization)
  Sender: FDA-Public Use
  Company Number: US-ASTRAZENECA-2008UW16505

PATIENT
  Age: 24924 Day
  Sex: Male
  Weight: 81.6 kg

DRUGS (3)
  1. NEXIUM [Suspect]
     Indication: GASTROOESOPHAGEAL REFLUX DISEASE
     Route: 048
     Dates: start: 20061219
  2. METOPROLOL TARTRATE [Concomitant]
  3. CARTIAST [Concomitant]

REACTIONS (2)
  - ARTHRITIS [None]
  - FEMUR FRACTURE [None]
